FAERS Safety Report 8660960 (Version 6)
Quarter: 2017Q3

REPORT INFORMATION
  Report Type: Spontaneous
  Country: US (occurrence: US)
  Receive Date: 20120711
  Receipt Date: 20170928
  Transmission Date: 20171128
  Serious: No
  Sender: FDA-Public Use
  Company Number: US-ASTRAZENECA-2012SE43732

PATIENT
  Age: 26454 Day
  Sex: Female
  Weight: 34.9 kg

DRUGS (31)
  1. SYMBICORT [Suspect]
     Active Substance: BUDESONIDE\FORMOTEROL FUMARATE DIHYDRATE
     Indication: DYSPNOEA
     Dosage: 160/4.5 MICROGRAMS TWO PUFFS TWO TIMES A DAY
     Route: 055
     Dates: start: 201609
  2. SYMBICORT [Suspect]
     Active Substance: BUDESONIDE\FORMOTEROL FUMARATE DIHYDRATE
     Indication: ASTHMA
     Dosage: 160/4.5 MICROGRAMS TWO PUFFS TWO TIMES A DAY
     Route: 055
     Dates: start: 20170404
  3. METOPROLOL TARTRATE. [Concomitant]
     Active Substance: METOPROLOL TARTRATE
     Indication: HYPERTENSION
  4. SYMBICORT [Suspect]
     Active Substance: BUDESONIDE\FORMOTEROL FUMARATE DIHYDRATE
     Indication: ASTHMA
     Dosage: 160/4.5 MICROGRAMS TWO PUFFS TWO TIMES A DAY
     Route: 055
     Dates: start: 20160815
  5. SYMBICORT [Suspect]
     Active Substance: BUDESONIDE\FORMOTEROL FUMARATE DIHYDRATE
     Indication: ALLERGY TO CHEMICALS
     Dosage: 160/4.5 MICROGRAMS TWO PUFFS TWO TIMES A DAY
     Route: 055
     Dates: start: 20160815
  6. SYMBICORT [Suspect]
     Active Substance: BUDESONIDE\FORMOTEROL FUMARATE DIHYDRATE
     Indication: DYSPNOEA
     Dosage: 160/4.5 MICROGRAMS TWO PUFFS TWO TIMES A DAY
     Route: 055
     Dates: start: 20160815
  7. SYMBICORT [Suspect]
     Active Substance: BUDESONIDE\FORMOTEROL FUMARATE DIHYDRATE
     Indication: BRONCHITIS
     Dosage: 160/4.5 MICROGRAMS TWO PUFFS TWO TIMES A DAY
     Route: 055
     Dates: start: 20170404
  8. SYMBICORT [Suspect]
     Active Substance: BUDESONIDE\FORMOTEROL FUMARATE DIHYDRATE
     Indication: DYSPNOEA
     Dosage: 160/4.5 MICROGRAMS TWO PUFFS TWO TIMES A DAY
     Route: 055
     Dates: start: 20170404
  9. SYMBICORT [Suspect]
     Active Substance: BUDESONIDE\FORMOTEROL FUMARATE DIHYDRATE
     Indication: DYSPNOEA
     Dosage: 160/4.5 MICROGRAMS TWO PUFFS TWO TIMES A DAY
     Route: 055
  10. XOPENEX [Concomitant]
     Active Substance: LEVALBUTEROL HYDROCHLORIDE
     Indication: DYSPNOEA
     Dosage: 2 PUFFS EVERY 6 HRS PRN
     Route: 055
  11. SYMBICORT [Suspect]
     Active Substance: BUDESONIDE\FORMOTEROL FUMARATE DIHYDRATE
     Indication: ASTHMA
     Dosage: 80/4.5 MICROGRAMS, TWO PUFFS TWO TIMES A DAY
     Route: 055
     Dates: start: 201310, end: 20160814
  12. SYMBICORT [Suspect]
     Active Substance: BUDESONIDE\FORMOTEROL FUMARATE DIHYDRATE
     Indication: ALLERGY TO CHEMICALS
     Dosage: 160/4.5 MICROGRAMS TWO PUFFS TWO TIMES A DAY
     Route: 055
     Dates: start: 20170404
  13. FLUTICASONE. [Concomitant]
     Active Substance: FLUTICASONE
  14. XOPENEX [Concomitant]
     Active Substance: LEVALBUTEROL HYDROCHLORIDE
     Indication: ASTHMA
     Route: 055
  15. SYMBICORT [Suspect]
     Active Substance: BUDESONIDE\FORMOTEROL FUMARATE DIHYDRATE
     Indication: ASTHMA
     Dosage: 80/4.5 MICROGRAMS, TWO PUFFS TWO TIMES A DAY
     Route: 055
     Dates: end: 20120620
  16. SYMBICORT [Suspect]
     Active Substance: BUDESONIDE\FORMOTEROL FUMARATE DIHYDRATE
     Indication: BRONCHITIS
     Dosage: 80/4.5 MICROGRAMS, TWO PUFFS TWO TIMES A DAY
     Route: 055
     Dates: end: 20120620
  17. SYMBICORT [Suspect]
     Active Substance: BUDESONIDE\FORMOTEROL FUMARATE DIHYDRATE
     Indication: DYSPNOEA
     Dosage: 80/4.5 MICROGRAMS, TWO PUFFS TWO TIMES A DAY
     Route: 055
     Dates: end: 20120620
  18. SYMBICORT [Suspect]
     Active Substance: BUDESONIDE\FORMOTEROL FUMARATE DIHYDRATE
     Indication: ALLERGY TO CHEMICALS
     Dosage: 80/4.5 MICROGRAMS, TWO PUFFS TWO TIMES A DAY
     Route: 055
     Dates: start: 201310, end: 20160814
  19. SYMBICORT [Suspect]
     Active Substance: BUDESONIDE\FORMOTEROL FUMARATE DIHYDRATE
     Indication: BRONCHITIS
     Dosage: 160/4.5 MICROGRAMS TWO PUFFS TWO TIMES A DAY
     Route: 055
     Dates: start: 201609
  20. XOPENEX [Concomitant]
     Active Substance: LEVALBUTEROL HYDROCHLORIDE
     Indication: ASTHMA
     Dosage: 2 PUFFS EVERY 6 HRS PRN
     Route: 055
  21. XOPENEX [Concomitant]
     Active Substance: LEVALBUTEROL HYDROCHLORIDE
     Indication: DYSPNOEA
     Route: 055
  22. SYMBICORT [Suspect]
     Active Substance: BUDESONIDE\FORMOTEROL FUMARATE DIHYDRATE
     Indication: ALLERGY TO CHEMICALS
     Dosage: 80/4.5 MICROGRAMS, TWO PUFFS TWO TIMES A DAY
     Route: 055
     Dates: end: 20120620
  23. SYMBICORT [Suspect]
     Active Substance: BUDESONIDE\FORMOTEROL FUMARATE DIHYDRATE
     Indication: BRONCHITIS
     Dosage: 160/4.5 MICROGRAMS TWO PUFFS TWO TIMES A DAY
     Route: 055
     Dates: start: 20160815
  24. SYMBICORT [Suspect]
     Active Substance: BUDESONIDE\FORMOTEROL FUMARATE DIHYDRATE
     Indication: ALLERGY TO CHEMICALS
     Dosage: 160/4.5 MICROGRAMS TWO PUFFS TWO TIMES A DAY
     Route: 055
  25. SYMBICORT [Suspect]
     Active Substance: BUDESONIDE\FORMOTEROL FUMARATE DIHYDRATE
     Indication: ASTHMA
     Dosage: 160/4.5 MICROGRAMS TWO PUFFS TWO TIMES A DAY
     Route: 055
  26. PROAIR HFA [Concomitant]
     Active Substance: ALBUTEROL SULFATE
     Indication: ASTHMA
  27. SYMBICORT [Suspect]
     Active Substance: BUDESONIDE\FORMOTEROL FUMARATE DIHYDRATE
     Indication: DYSPNOEA
     Dosage: 80/4.5 MICROGRAMS, TWO PUFFS TWO TIMES A DAY
     Route: 055
     Dates: start: 201310, end: 20160814
  28. SYMBICORT [Suspect]
     Active Substance: BUDESONIDE\FORMOTEROL FUMARATE DIHYDRATE
     Indication: BRONCHITIS
     Dosage: 80/4.5 MICROGRAMS, TWO PUFFS TWO TIMES A DAY
     Route: 055
     Dates: start: 201310, end: 20160814
  29. SYMBICORT [Suspect]
     Active Substance: BUDESONIDE\FORMOTEROL FUMARATE DIHYDRATE
     Indication: ASTHMA
     Dosage: 160/4.5 MICROGRAMS TWO PUFFS TWO TIMES A DAY
     Route: 055
     Dates: start: 201609
  30. SYMBICORT [Suspect]
     Active Substance: BUDESONIDE\FORMOTEROL FUMARATE DIHYDRATE
     Indication: ALLERGY TO CHEMICALS
     Dosage: 160/4.5 MICROGRAMS TWO PUFFS TWO TIMES A DAY
     Route: 055
     Dates: start: 201609
  31. SYMBICORT [Suspect]
     Active Substance: BUDESONIDE\FORMOTEROL FUMARATE DIHYDRATE
     Indication: BRONCHITIS
     Dosage: 160/4.5 MICROGRAMS TWO PUFFS TWO TIMES A DAY
     Route: 055

REACTIONS (10)
  - Memory impairment [Unknown]
  - Product use in unapproved indication [Unknown]
  - Malaise [Unknown]
  - Product packaging quantity issue [Unknown]
  - Visual impairment [Unknown]
  - Drug dose omission [Unknown]
  - Weight decreased [Unknown]
  - Off label use [Unknown]
  - Intentional device misuse [Unknown]
  - Device failure [Unknown]

NARRATIVE: CASE EVENT DATE: 20120620
